FAERS Safety Report 24015006 (Version 1)
Quarter: 2024Q2

REPORT INFORMATION
  Report Type: Other
  Country: CA (occurrence: CA)
  Receive Date: 20240626
  Receipt Date: 20240626
  Transmission Date: 20240716
  Serious: Yes (Other)
  Sender: FDA-Public Use
  Company Number: CA-BIOCON BIOLOGICS LIMITED-BBL2024004556

PATIENT

DRUGS (1)
  1. TRASTUZUMAB [Suspect]
     Active Substance: TRASTUZUMAB
     Indication: HER2 positive breast cancer
     Dosage: 295 MILLIGRAM, Q3W (1 EVERY 3 WEEKS)
     Route: 042

REACTIONS (4)
  - Colorectal cancer stage IV [Unknown]
  - Quality of life decreased [Unknown]
  - Nausea [Unknown]
  - Fatigue [Unknown]
